FAERS Safety Report 16276713 (Version 2)
Quarter: 2019Q2

REPORT INFORMATION
  Report Type: Spontaneous
  Country: US (occurrence: US)
  Receive Date: 20190506
  Receipt Date: 20190508
  Transmission Date: 20190711
  Serious: No
  Sender: FDA-Public Use
  Company Number: US-PFIZER INC-2019188353

PATIENT
  Age: 71 Year
  Sex: Female
  Weight: 103.8 kg

DRUGS (4)
  1. FELDENE [Suspect]
     Active Substance: PIROXICAM
     Indication: ARTHRITIS
     Dosage: 20 MG, DAILY
     Route: 048
     Dates: start: 20190210
  2. TYLENOL [Concomitant]
     Active Substance: ACETAMINOPHEN
     Indication: ARTHRITIS
     Dosage: 650 MG, UNK(TAKES 1 BY MOUTH ABOUT 4 HOURS)
     Route: 048
  3. IBUPROFEN. [Concomitant]
     Active Substance: IBUPROFEN
     Indication: PAIN
  4. IBUPROFEN. [Concomitant]
     Active Substance: IBUPROFEN
     Indication: ARTHRITIS
     Dosage: 800 MG, UNK,(TAKES 4 BY MOUTH ABOUT EVERY 4 HOURS WITH HER TYLENOL)
     Route: 048

REACTIONS (1)
  - Therapeutic product effect incomplete [Unknown]
